FAERS Safety Report 8760072 (Version 1)
Quarter: 2012Q4

REPORT INFORMATION
  Report Type: Spontaneous
  Country: US (occurrence: None)
  Receive Date: 20120829
  Receipt Date: 20120829
  Transmission Date: 20130627
  Serious: No
  Sender: FDA-Public Use
  Company Number: None

PATIENT
  Sex: Female
  Weight: 42 kg

DRUGS (16)
  1. RIVAROXABAN [Suspect]
     Indication: DVT PROPHYLAXIS
     Route: 048
     Dates: start: 20120823, end: 20120823
  2. RIVAROXABAN [Suspect]
     Indication: TOTAL KNEE ARTHROPLASTY
     Route: 048
     Dates: start: 20120823, end: 20120823
  3. ACTEAMINOPHEN [Concomitant]
  4. BISACODYL [Concomitant]
  5. CEFAZOLIN [Concomitant]
  6. CELECOXIB [Concomitant]
  7. DOCUSATE [Concomitant]
  8. DOCUSATE AND SENNA [Concomitant]
  9. FENTANYL [Concomitant]
  10. IBUPROFEN [Concomitant]
  11. MORPHINE [Concomitant]
  12. ONDANSETRON [Concomitant]
  13. BECLOMETHASONE [Concomitant]
  14. PREGABLIN [Concomitant]
  15. PROMETHAZINE [Concomitant]
  16. SIMVASTATIN [Concomitant]

REACTIONS (2)
  - Hypotension [None]
  - Pulmonary embolism [None]
